FAERS Safety Report 7094609-7 (Version None)
Quarter: 2010Q4

REPORT INFORMATION
  Report Type: 
  Country: None (occurrence: None)
  Receive Date: 20101110
  Receipt Date: 20100915
  Transmission Date: 20110411
  Serious: Yes (Hospitalization)
  Sender: FDA-Public Use
  Company Number: DE-SANOFI-AVENTIS-2010SA066752

PATIENT
  Age: 29 Year
  Sex: Female

DRUGS (1)
  1. APIDRA [Suspect]
     Indication: GESTATIONAL DIABETES
     Dosage: INITIAL DOSE 2-2-2 PER DAY (BEFORE MEALS), INCREASED UP TO 4-4-4 PER DAY
     Route: 058
     Dates: start: 20071101

REACTIONS (2)
  - DRUG EXPOSURE DURING PREGNANCY [None]
  - PREMATURE LABOUR [None]
